FAERS Safety Report 6314237-8 (Version None)
Quarter: 2009Q3

REPORT INFORMATION
  Report Type: 
  Country: None (occurrence: None)
  Receive Date: 20090817
  Receipt Date: 20090804
  Transmission Date: 20100115
  Serious: Yes (Other)
  Sender: FDA-Public Use
  Company Number: PAR_03126_2009

PATIENT
  Sex: Female
  Weight: 65.7716 kg

DRUGS (13)
  1. HYDROXYUREA [Suspect]
     Indication: BONE MARROW DISORDER
     Dosage: 1000 MG FOR 4 DAYS, THEN 1500 MG FOR 3 DAYS ORAL
     Route: 048
     Dates: start: 20090301, end: 20090101
  2. ASPIRIN [Concomitant]
  3. VITAMIN B-12 [Concomitant]
  4. LEVOXYL [Concomitant]
  5. BISOPROLOL [Concomitant]
  6. AMLODIPINE [Concomitant]
  7. TEKTURNA /01763601/ [Concomitant]
  8. HYDROCHLOROTHIAZIDE [Concomitant]
  9. NU-IRON [Concomitant]
  10. MULTIVITAMIN /01229101/ [Concomitant]
  11. VITAMIN C /00008001/ [Concomitant]
  12. ALLOPURINOL [Concomitant]
  13. SIMVASTATIN [Concomitant]

REACTIONS (5)
  - GASTRIC DISORDER [None]
  - LIVER DISORDER [None]
  - OEDEMA PERIPHERAL [None]
  - PALPITATIONS [None]
  - RENAL FAILURE [None]
